FAERS Safety Report 7950528-2 (Version None)
Quarter: 2011Q4

REPORT INFORMATION
  Report Type: 
  Country: None (occurrence: None)
  Receive Date: 20111130
  Receipt Date: 20111118
  Transmission Date: 20120403
  Serious: Yes (Hospitalization, Other)
  Sender: FDA-Public Use
  Company Number: US-ROCHE-792257

PATIENT
  Sex: Male
  Weight: 65.83 kg

DRUGS (2)
  1. ACCUTANE [Suspect]
     Indication: ACNE
     Dates: start: 20040707, end: 20041207
  2. TAZORAC [Concomitant]

REACTIONS (8)
  - IRRITABLE BOWEL SYNDROME [None]
  - ANAL FISTULA [None]
  - ILEUS [None]
  - CROHN'S DISEASE [None]
  - GASTROINTESTINAL DISORDER [None]
  - ANAL FISSURE [None]
  - DRY SKIN [None]
  - INTESTINAL POLYP [None]
